FAERS Safety Report 9536440 (Version 1)
Quarter: 2013Q2

REPORT INFORMATION
  Report Type: Spontaneous
  Country: US (occurrence: None)
  Receive Date: 20130507
  Receipt Date: 20130507
  Transmission Date: 20140414
  Serious: No
  Sender: FDA-Public Use
  Company Number: PHEH2012US024750

PATIENT
  Age: 62 Year
  Sex: Female
  Weight: 73.5 kg

DRUGS (20)
  1. AFINITOR (RAD) [Suspect]
     Indication: BREAST CANCER METASTATIC
     Route: 048
  2. AFINITOR (RAD) [Suspect]
     Indication: BREAST CANCER STAGE IV
     Route: 048
  3. HYDROCHLOROTHI (HYDROCHLOROTHIAZIDE) [Concomitant]
  4. FISH OIL [Concomitant]
  5. TUMS (CALCIUM CARBONATE) [Concomitant]
  6. TENOLOL (ATENOLOL) [Concomitant]
  7. IMODIUM (LOPERAMIDE HYDROCHLORIDE) [Concomitant]
  8. FLUTICASAONE [Concomitant]
  9. MELOXICAM [Concomitant]
  10. PHENERGAN (CEPHAELIS SPP. FLUID EXTRACT, CHLOROFORM, CITRIC ACID, DEXTROMETHORPHAN HYDROBROMIDE, PROMETHAZINE HYDROCHLORIDE, SODIUM CITRATE, SULFOGAIACOL) [Concomitant]
  11. CITRACAL + D (CALCIUM CITRATE, ERGOCALCIFEROL) [Concomitant]
  12. CIPRO (CIPROFLOXACIN HYDROCHLORDE) [Concomitant]
  13. ZOFRAN (ONDANSETRON HYDROCHLORIDE) [Concomitant]
  14. REGLAN (METOCLOPRAMIDE HYDROCHLORIDE) [Concomitant]
  15. ZETIA (EZETIMIBE) [Concomitant]
  16. KOMBIGLYZE (METFORMIN HYDROCHLORIDE, SAXAGLIPTIN HYDROCHLORIDE) [Concomitant]
  17. HYZAAR (HYDROCHLOROTHIAZIDE, LOSARTAN POTASSIUM) [Concomitant]
  18. PRILOSEC [Concomitant]
  19. AROMASIN (EXEMESTANE) [Concomitant]
  20. TYLENOL (PARACETAMOL) [Concomitant]

REACTIONS (8)
  - Weight decreased [None]
  - Abdominal discomfort [None]
  - Nausea [None]
  - Decreased appetite [None]
  - Vomiting [None]
  - Diarrhoea [None]
  - Blood glucose increased [None]
  - Urinary tract infection [None]
